FAERS Safety Report 23721365 (Version 1)
Quarter: 2024Q2

REPORT INFORMATION
  Report Type: Spontaneous
  Country: US (occurrence: US)
  Receive Date: 20240409
  Receipt Date: 20240409
  Transmission Date: 20240716
  Serious: Yes (Other)
  Sender: FDA-Public Use
  Company Number: US-IGSA-BIG0027832

PATIENT
  Sex: Male

DRUGS (2)
  1. ANTIHEMOPHILIC FACTOR HUMAN [Suspect]
     Active Substance: ANTIHEMOPHILIC FACTOR HUMAN
     Indication: Factor VIII deficiency
     Route: 065
  2. EMICIZUMAB [Concomitant]
     Active Substance: EMICIZUMAB
     Indication: Haemorrhage
     Dosage: UNK UNK, Q.WK.

REACTIONS (1)
  - Factor VIII inhibition [Recovered/Resolved]
